FAERS Safety Report 16067184 (Version 1)
Quarter: 2019Q1

REPORT INFORMATION
  Report Type: Spontaneous
  Country: NL (occurrence: NL)
  Receive Date: 20190313
  Receipt Date: 20190313
  Transmission Date: 20190418
  Serious: Yes (Hospitalization)
  Sender: FDA-Public Use
  Company Number: NL-MYLANLABS-2019M1023051

PATIENT
  Age: 39 Year
  Sex: Female
  Weight: 95 kg

DRUGS (12)
  1. LEVOTHYROXINE. [Concomitant]
     Active Substance: LEVOTHYROXINE
     Dosage: 1 X PER DAG 100 MICROGRAM
  2. PARACETAMOL/CODEINE [Concomitant]
     Active Substance: ACETAMINOPHEN\CODEINE PHOSPHATE
     Dosage: 3 X PER DAG 2 STUK
  3. ENTOCORT [Concomitant]
     Active Substance: BUDESONIDE
     Dosage: 1 X PER DAG 9 MILLIGRAM (GEDURENDE 1 MAAND)
  4. ZOPICLON [Concomitant]
     Active Substance: ZOPICLONE
     Dosage: ZONODIG ZO NODIG 1 X PER DAG 7,5 MILLIGRAM
  5. ETHINYLESTRADIOL/LEVONORGESTREL [Concomitant]
     Active Substance: ETHINYL ESTRADIOL\LEVONORGESTREL
     Dosage: X PER DAG 1 STUK GEDURENDE 3 WEKEN, DAARNA 1 WEEK STOPPEN
  6. LOPERAMIDE [Concomitant]
     Active Substance: LOPERAMIDE
     Dosage: ZONODIG ZO NODIG 1 X PER DAG 2 MILLIGRAM
  7. ENTOCORT [Concomitant]
     Active Substance: BUDESONIDE
     Dosage: 1 X PER DAG 3 MILLIGRAM (GEDURENDE 1 MAAND
  8. ENTOCORT [Concomitant]
     Active Substance: BUDESONIDE
     Dosage: 1 X PER DAG 6 MILLIGRAM (GEDURENDE 1 MAAND)
  9. AZATHIOPRINE. [Suspect]
     Active Substance: AZATHIOPRINE
     Indication: CROHN^S DISEASE
     Dosage: 200 MILLIGRAM, QD (1DD4)
     Route: 048
     Dates: start: 20180706, end: 20180821
  10. PLANTAGO OVATA [Concomitant]
     Active Substance: HERBALS\PLANTAGO OVATA LEAF
     Dosage: ZONODIG ZO NODIG 1 X PER DAG 1 STUK CHRONISCH
  11. OMEPRAZOL                          /00661201/ [Concomitant]
     Active Substance: OMEPRAZOLE
     Dosage: 1 X PER DAG 20 MILLIGRAM
  12. NAPROXEN. [Concomitant]
     Active Substance: NAPROXEN
     Dosage: 2 X PER DAG 500 MILLIGRAM

REACTIONS (1)
  - Pancreatitis [Recovered/Resolved]

NARRATIVE: CASE EVENT DATE: 20180820
